FAERS Safety Report 7795521-8 (Version None)
Quarter: 2011Q4

REPORT INFORMATION
  Report Type: 
  Country: None (occurrence: None)
  Receive Date: 20111004
  Receipt Date: 20110929
  Transmission Date: 20120403
  Serious: Yes (Death)
  Sender: FDA-Public Use
  Company Number: JP-EISAI INC-E2090-01773-CLI-JP

PATIENT
  Sex: Male

DRUGS (12)
  1. COMTAN [Concomitant]
  2. FP-OD [Concomitant]
  3. FAMOTIDINE [Concomitant]
  4. ZONISAMIDE [Concomitant]
     Route: 048
     Dates: start: 20110923, end: 20110923
  5. MILELAN LA [Concomitant]
  6. MASHININGAN [Concomitant]
  7. ZONISAMIDE [Suspect]
     Indication: PARKINSON'S DISEASE
     Dosage: DOUBLE BLIND
     Route: 048
     Dates: start: 20110701, end: 20110922
  8. PERMAX [Concomitant]
  9. DOPS [Concomitant]
  10. MUCOSTA [Concomitant]
  11. NEW LECICARBON [Concomitant]
  12. CARBIDOPA AND LEVODOPA [Concomitant]

REACTIONS (1)
  - COMPLETED SUICIDE [None]
